FAERS Safety Report 8286744-2 (Version None)
Quarter: 2012Q2

REPORT INFORMATION
  Report Type: 
  Country: None (occurrence: None)
  Receive Date: 20120416
  Receipt Date: 20120327
  Transmission Date: 20120825
  Serious: No
  Sender: FDA-Public Use
  Company Number: US-BAYER-2012-025586

PATIENT
  Age: 90 Year
  Sex: Female
  Weight: 63.492 kg

DRUGS (2)
  1. ALEVE (CAPLET) [Suspect]
     Indication: SYNOVIAL CYST
     Dosage: 2 U, UNK
     Route: 048
     Dates: start: 20120101, end: 20120101
  2. NAPROXEN (ALEVE) [Suspect]
     Dosage: 2 U, BID
     Route: 048
     Dates: start: 20120101, end: 20120101

REACTIONS (2)
  - DRUG INEFFECTIVE [None]
  - NO ADVERSE EVENT [None]
